FAERS Safety Report 8407641-5 (Version None)
Quarter: 2012Q2

REPORT INFORMATION
  Report Type: 
  Country: None (occurrence: None)
  Receive Date: 20120604
  Receipt Date: 20120531
  Transmission Date: 20120825
  Serious: Yes (Hospitalization)
  Sender: FDA-Public Use
  Company Number: US-PFIZER INC-2012131872

PATIENT
  Sex: Male
  Weight: 83.9 kg

DRUGS (3)
  1. KEPPRA [Concomitant]
     Indication: POST-TRAUMATIC EPILEPSY
     Dosage: UNK
  2. NORVASC [Suspect]
     Indication: BLOOD PRESSURE INCREASED
     Dosage: 10 MG, 1X/DAY
     Route: 048
     Dates: start: 20110101
  3. IBUPROFEN [Concomitant]
     Dosage: UNK, AS NEEDED

REACTIONS (2)
  - ALCOHOL WITHDRAWAL SYNDROME [None]
  - CONVULSION [None]
